FAERS Safety Report 14832214 (Version 2)
Quarter: 2018Q2

REPORT INFORMATION
  Report Type: Report from Study
  Country: US (occurrence: US)
  Receive Date: 20180501
  Receipt Date: 20180505
  Transmission Date: 20180711
  Serious: Yes (Hospitalization)
  Sender: FDA-Public Use
  Company Number: US-ROCHE-1458394

PATIENT
  Age: 67 Year
  Sex: Female

DRUGS (42)
  1. RANIBIZUMAB. [Suspect]
     Active Substance: RANIBIZUMAB
     Dosage: PRP LEFT EYE (OS)
     Route: 050
     Dates: start: 20120307
  2. RANIBIZUMAB. [Suspect]
     Active Substance: RANIBIZUMAB
     Dosage: IN RIGHT AND LEFT EYE
     Route: 050
     Dates: start: 20120425
  3. RANIBIZUMAB. [Suspect]
     Active Substance: RANIBIZUMAB
     Dosage: IN RIGHT AND LEFT EYE
     Route: 050
     Dates: start: 20120622
  4. RANIBIZUMAB. [Suspect]
     Active Substance: RANIBIZUMAB
     Dosage: LEFT EYE (OS)
     Route: 050
     Dates: start: 20120913
  5. RANIBIZUMAB. [Suspect]
     Active Substance: RANIBIZUMAB
     Dosage: IN RIGHT AND LEFT EYE
     Route: 050
     Dates: start: 20121212
  6. RANIBIZUMAB. [Suspect]
     Active Substance: RANIBIZUMAB
     Dosage: LEFT EYE (OS)
     Route: 050
     Dates: start: 20140729
  7. RANIBIZUMAB. [Suspect]
     Active Substance: RANIBIZUMAB
     Dosage: IN RIGHT AND LEFT EYE
     Route: 050
     Dates: start: 20140828
  8. OFLOXACIN. [Concomitant]
     Active Substance: OFLOXACIN
     Route: 065
     Dates: start: 20120229
  9. AMOXICILLIN. [Concomitant]
     Active Substance: AMOXICILLIN
     Indication: KIDNEY INFECTION
     Route: 048
     Dates: start: 20130221
  10. RANIBIZUMAB. [Suspect]
     Active Substance: RANIBIZUMAB
     Dosage: LEFT EYE (OS)
     Route: 050
     Dates: start: 20130904
  11. RANIBIZUMAB. [Suspect]
     Active Substance: RANIBIZUMAB
     Dosage: IN RIGHT AND LEFT EYE
     Route: 050
     Dates: start: 20131002
  12. RANIBIZUMAB. [Suspect]
     Active Substance: RANIBIZUMAB
     Dosage: RIGHT EYE (OD)
     Route: 050
     Dates: start: 20140725
  13. ASPIRIN. [Concomitant]
     Active Substance: ASPIRIN
     Route: 048
  14. RANIBIZUMAB. [Suspect]
     Active Substance: RANIBIZUMAB
     Dosage: IN RIGHT AND LEFT EYE
     Route: 050
     Dates: start: 20120523
  15. RANIBIZUMAB. [Suspect]
     Active Substance: RANIBIZUMAB
     Dosage: IN RIGHT AND LEFT EYE
     Route: 050
     Dates: start: 20120720
  16. RANIBIZUMAB. [Suspect]
     Active Substance: RANIBIZUMAB
     Dosage: IN RIGHT AND LEFT EYE
     Route: 050
     Dates: start: 20130130
  17. RANIBIZUMAB. [Suspect]
     Active Substance: RANIBIZUMAB
     Dosage: IN RIGHT AND LEFT EYE
     Route: 050
     Dates: start: 20141003
  18. DIOVAN HCT [Concomitant]
     Active Substance: HYDROCHLOROTHIAZIDE\VALSARTAN
     Indication: HYPERTENSION
     Route: 048
  19. INSULIN ASPART PROTAMINE [Concomitant]
     Dosage: 30 UNITS
     Route: 030
     Dates: start: 20130220
  20. RANIBIZUMAB. [Suspect]
     Active Substance: RANIBIZUMAB
     Dosage: IN RIGHT AND LEFT EYE
     Route: 050
     Dates: start: 20140815
  21. RANIBIZUMAB. [Suspect]
     Active Substance: RANIBIZUMAB
     Dosage: LEFT EYE (OS)
     Route: 050
     Dates: start: 20140115
  22. ATENOLOL. [Concomitant]
     Active Substance: ATENOLOL
     Indication: HYPERTENSION
     Route: 048
  23. THYROXINE [Concomitant]
     Active Substance: LEVOTHYROXINE
     Indication: HYPERTHYROIDISM
     Route: 048
  24. RANIBIZUMAB. [Suspect]
     Active Substance: RANIBIZUMAB
     Indication: DIABETIC RETINOPATHY
     Dosage: IN RIGHT EYE (OD) AND LEFT EYE (OS)
     Route: 050
     Dates: start: 20120229
  25. RANIBIZUMAB. [Suspect]
     Active Substance: RANIBIZUMAB
     Dosage: RIGHT EYE (OD)
     Route: 050
     Dates: start: 20131122
  26. RANIBIZUMAB. [Suspect]
     Active Substance: RANIBIZUMAB
     Dosage: IN RIGHT AND LEFT EYE
     Route: 050
     Dates: start: 20140314
  27. RANIBIZUMAB. [Suspect]
     Active Substance: RANIBIZUMAB
     Dosage: LEFT EYE (OS)
     Route: 050
     Dates: start: 20140418
  28. RANIBIZUMAB. [Suspect]
     Active Substance: RANIBIZUMAB
     Dosage: IN RIGHT AND LEFT EYE
     Route: 050
     Dates: start: 20140618
  29. RANIBIZUMAB. [Suspect]
     Active Substance: RANIBIZUMAB
     Dosage: IN RIGHT AND LEFT EYE
     Route: 050
     Dates: start: 20141119
  30. INSULIN ASPART PROTAMINE [Concomitant]
     Indication: DIABETES MELLITUS
     Dosage: 50 UNITS
     Route: 030
  31. RANIBIZUMAB. [Suspect]
     Active Substance: RANIBIZUMAB
     Dosage: IN RIGHT AND LEFT EYE
     Route: 050
     Dates: start: 20121114
  32. RANIBIZUMAB. [Suspect]
     Active Substance: RANIBIZUMAB
     Dosage: IN RIGHT AND LEFT EYE
     Route: 050
     Dates: start: 20130531
  33. RANIBIZUMAB. [Suspect]
     Active Substance: RANIBIZUMAB
     Dosage: IN RIGHT AND LEFT EYE
     Route: 050
     Dates: start: 20130705
  34. RANIBIZUMAB. [Suspect]
     Active Substance: RANIBIZUMAB
     Dosage: PRP LEFT EYE (OS)
     Route: 050
     Dates: start: 20120411
  35. RANIBIZUMAB. [Suspect]
     Active Substance: RANIBIZUMAB
     Dosage: IN RIGHT AND LEFT EYE
     Route: 050
     Dates: start: 20141003
  36. RANIBIZUMAB. [Suspect]
     Active Substance: RANIBIZUMAB
     Dosage: IN RIGHT AND LEFT EYE
     Route: 050
     Dates: start: 20120328
  37. RANIBIZUMAB. [Suspect]
     Active Substance: RANIBIZUMAB
     Dosage: IN RIGHT AND LEFT EYE
     Route: 050
     Dates: start: 20130807
  38. RANIBIZUMAB. [Suspect]
     Active Substance: RANIBIZUMAB
     Dosage: IN RIGHT AND LEFT EYE
     Route: 050
     Dates: start: 20141119
  39. RANIBIZUMAB. [Suspect]
     Active Substance: RANIBIZUMAB
     Dosage: RIGHT EYE (OD)
     Route: 050
     Dates: start: 20120912
  40. RANIBIZUMAB. [Suspect]
     Active Substance: RANIBIZUMAB
     Dosage: IN RIGHT AND LEFT EYE
     Route: 050
     Dates: start: 20121010
  41. RANIBIZUMAB. [Suspect]
     Active Substance: RANIBIZUMAB
     Dosage: LEFT EYE (OS)
     Route: 050
     Dates: start: 20131204
  42. RANIBIZUMAB. [Suspect]
     Active Substance: RANIBIZUMAB
     Dosage: IN RIGHT AND LEFT EYE
     Route: 050
     Dates: start: 20140514

REACTIONS (4)
  - Diabetic foot [Not Recovered/Not Resolved]
  - Gastroenteritis [Recovered/Resolved]
  - Colon cancer [Not Recovered/Not Resolved]
  - Diverticulitis [Unknown]

NARRATIVE: CASE EVENT DATE: 20140228
